FAERS Safety Report 6238292-9 (Version None)
Quarter: 2009Q2

REPORT INFORMATION
  Report Type: 
  Country: None (occurrence: None)
  Receive Date: 20090622
  Receipt Date: 20090612
  Transmission Date: 20091009
  Serious: Yes (Other)
  Sender: FDA-Public Use
  Company Number: FR-JNJFOC-20090600583

PATIENT
  Age: 40 Year
  Sex: Male

DRUGS (5)
  1. REMICADE [Suspect]
     Indication: ANKYLOSING SPONDYLITIS
     Route: 042
  2. REMICADE [Suspect]
     Indication: CROHN'S DISEASE
     Dosage: TREATED WITH INFLIXIMAB FOR TWO YEARS
     Route: 042
  3. OROCAL D3 [Concomitant]
  4. SPASFON [Concomitant]
  5. PENTASA [Concomitant]

REACTIONS (3)
  - MYCOBACTERIUM MARINUM INFECTION [None]
  - PYODERMA [None]
  - TENOSYNOVITIS [None]
